FAERS Safety Report 11022225 (Version 7)
Quarter: 2015Q3

REPORT INFORMATION
  Report Type: Report from Study
  Country: JP (occurrence: JP)
  Receive Date: 20150413
  Receipt Date: 20150713
  Transmission Date: 20151125
  Serious: Yes (Hospitalization)
  Sender: FDA-Public Use
  Company Number: JP-009507513-1504JPN004905

PATIENT
  Age: 70 Year
  Sex: Male

DRUGS (14)
  1. PEMBROLIZUMAB. [Suspect]
     Active Substance: PEMBROLIZUMAB
     Dosage: 2 MG/KG, Q3W
     Route: 042
     Dates: start: 20150428
  2. AMOBAN [Concomitant]
     Active Substance: ZOPICLONE
     Indication: NEUROSIS
     Dosage: 7.5 MG, QD
     Route: 048
     Dates: start: 201502
  3. AMLODIPINE [Concomitant]
     Active Substance: AMLODIPINE BESYLATE
     Indication: HYPERTENSION
     Dosage: 2.5 MG, QD
     Route: 048
     Dates: start: 20150216
  4. MAGNESIUM OXIDE. [Concomitant]
     Active Substance: MAGNESIUM OXIDE
     Indication: CONSTIPATION PROPHYLAXIS
     Dosage: 330 MG, TID
     Route: 048
     Dates: start: 20150216
  5. CARBOCYSTEINE [Concomitant]
     Active Substance: CARBOCYSTEINE
     Indication: CHRONIC SINUSITIS
     Dosage: 500 MG, TID
     Route: 048
     Dates: start: 20150216
  6. MIRTAZAPINE. [Concomitant]
     Active Substance: MIRTAZAPINE
     Indication: NEUROSIS
     Dosage: TOTAL DAILY DOSE 7.5MG
     Route: 048
     Dates: start: 20150216
  7. CELOOP [Concomitant]
     Indication: GASTRITIS PROPHYLAXIS
     Dosage: 50 MG, TID
     Route: 048
     Dates: start: 20150216
  8. ROHYPNOL [Concomitant]
     Active Substance: FLUNITRAZEPAM
     Indication: NEUROSIS
     Dosage: 1 MG, QD
     Route: 048
     Dates: start: 201502
  9. WYPAX [Concomitant]
     Active Substance: LORAZEPAM
     Indication: NEUROSIS
     Dosage: 0.5 MG, TID
     Route: 048
     Dates: start: 20150216
  10. VITAMINS NOS [Concomitant]
     Active Substance: VITAMINS
     Indication: FEELING COLD
     Dosage: 5 MICROGRAM, BID
     Route: 048
     Dates: start: 20150216
  11. LOXOPROFEN SODIUM [Concomitant]
     Active Substance: LOXOPROFEN SODIUM
     Indication: TUMOUR PAIN
     Dosage: TOTAL DAILLY DOSE 180MG
     Route: 048
     Dates: start: 20150216
  12. OXYCONTIN [Concomitant]
     Active Substance: OXYCODONE HYDROCHLORIDE
     Indication: TUMOUR PAIN
     Dosage: 5 MG, BID
     Route: 048
     Dates: start: 201502
  13. PEMBROLIZUMAB. [Suspect]
     Active Substance: PEMBROLIZUMAB
     Indication: NON-SMALL CELL LUNG CANCER
     Dosage: 2 MG/KG, Q3W
     Route: 042
     Dates: start: 20150318, end: 20150318
  14. DOGMATYL [Concomitant]
     Active Substance: SULPIRIDE
     Indication: NEUROSIS
     Dosage: 50 MG, TID
     Route: 048
     Dates: start: 20150216

REACTIONS (1)
  - Pneumonia [Recovered/Resolved]

NARRATIVE: CASE EVENT DATE: 20150327
